FAERS Safety Report 16344779 (Version 1)
Quarter: 2019Q2

REPORT INFORMATION
  Report Type: Spontaneous
  Country: NL (occurrence: NL)
  Receive Date: 20190522
  Receipt Date: 20190522
  Transmission Date: 20190711
  Serious: Yes (Other)
  Sender: FDA-Public Use
  Company Number: PHHY2019NL112319

PATIENT
  Age: 67 Year
  Sex: Female

DRUGS (6)
  1. PREDNISONE. [Suspect]
     Active Substance: PREDNISONE
     Indication: ANGIOEDEMA
  2. ADRENALIN [Suspect]
     Active Substance: EPINEPHRINE
     Indication: SWELLING FACE
     Route: 065
  3. PREDNISONE. [Suspect]
     Active Substance: PREDNISONE
     Indication: SWELLING FACE
     Route: 065
  4. ADRENALIN [Suspect]
     Active Substance: EPINEPHRINE
     Indication: ANGIOEDEMA
  5. HYDROXYCHLOROQUINE [Suspect]
     Active Substance: HYDROXYCHLOROQUINE
     Indication: SWELLING FACE
     Route: 065
  6. HYDROXYCHLOROQUINE [Suspect]
     Active Substance: HYDROXYCHLOROQUINE
     Indication: ANGIOEDEMA

REACTIONS (7)
  - Rash macular [Recovered/Resolved]
  - Ecthyma [Unknown]
  - Skin lesion [Recovered/Resolved]
  - Product use in unapproved indication [Unknown]
  - Necrosis [Unknown]
  - Pseudomonas infection [Recovered/Resolved]
  - Vasculitis [Unknown]
